FAERS Safety Report 5156971-1 (Version None)
Quarter: 2006Q4

REPORT INFORMATION
  Report Type: 
  Country: None (occurrence: None)
  Receive Date: 20061124
  Receipt Date: 20061116
  Transmission Date: 20070319
  Serious: Yes (Death)
  Sender: FDA-Public Use
  Company Number: CA-ROCHE-471653

PATIENT
  Age: 42 Year
  Sex: Male
  Weight: 80 kg

DRUGS (14)
  1. VESANOID [Suspect]
     Route: 048
  2. HYDROMORPHONE [Concomitant]
  3. HUMULIN 70/30 [Concomitant]
  4. ALLOPURINOL [Concomitant]
  5. ACETAMINOPHEN [Concomitant]
  6. NYSTATIN [Concomitant]
  7. PIPERACILLIN AND TAZOBACTAM [Concomitant]
  8. PPN [Concomitant]
     Dosage: TOTAL PARENTERAL NUTRITION.
  9. MORPHINE [Concomitant]
  10. VITAMIN K [Concomitant]
  11. MIDAZOLAM [Concomitant]
  12. CHLORHEXIDINE [Concomitant]
  13. DIMENHYDRINATE [Concomitant]
  14. PANTOPRAZOLE SODIUM [Concomitant]

REACTIONS (23)
  - ABDOMINAL PAIN [None]
  - ATRIAL FIBRILLATION [None]
  - BLOOD CREATININE INCREASED [None]
  - BLOOD UREA INCREASED [None]
  - CEREBROVASCULAR ACCIDENT [None]
  - CREPITATIONS [None]
  - DYSPNOEA [None]
  - HAEMODIALYSIS [None]
  - HAEMORRHAGE [None]
  - HEMIPARESIS [None]
  - HYPERHIDROSIS [None]
  - HYPERTENSION [None]
  - HYPOXIA [None]
  - INTESTINAL PERFORATION [None]
  - LEUKOCYTOSIS [None]
  - LIVEDO RETICULARIS [None]
  - OLIGURIA [None]
  - RENAL FAILURE ACUTE [None]
  - RESPIRATORY DISORDER [None]
  - RESPIRATORY DISTRESS [None]
  - TACHYCARDIA [None]
  - THROMBOCYTOPENIA [None]
  - THROMBOSIS [None]
